FAERS Safety Report 6856399-X (Version None)
Quarter: 2010Q3

REPORT INFORMATION
  Report Type: 
  Country: None (occurrence: None)
  Receive Date: 20100719
  Receipt Date: 20100708
  Transmission Date: 20110219
  Serious: Yes (Other)
  Sender: FDA-Public Use
  Company Number: AU-PFIZER INC-2010071765

PATIENT
  Age: 32 Year
  Sex: Female

DRUGS (3)
  1. CABASER [Suspect]
     Indication: PARKINSON'S DISEASE
     Dosage: UNK
     Route: 048
  2. CABASER [Suspect]
     Dosage: 1 MG, 1X/DAY
     Route: 048
     Dates: start: 19940101, end: 20061013
  3. SINEMET [Suspect]
     Indication: PARKINSON'S DISEASE
     Dosage: 5 TIMES/DAY
     Route: 048
     Dates: start: 20050101

REACTIONS (3)
  - INSOMNIA [None]
  - OBSESSIVE-COMPULSIVE DISORDER [None]
  - PSYCHOTIC DISORDER [None]
